FAERS Safety Report 6209587-X (Version None)
Quarter: 2009Q2

REPORT INFORMATION
  Report Type: 
  Country: None (occurrence: None)
  Receive Date: 20090601
  Receipt Date: 20090520
  Transmission Date: 20091009
  Serious: Yes (Other)
  Sender: FDA-Public Use
  Company Number: CA-JNJFOC-20090404305

PATIENT
  Sex: Female
  Weight: 46.6 kg

DRUGS (2)
  1. REMICADE [Suspect]
     Dosage: 33RD INFUSION
     Route: 042
  2. REMICADE [Suspect]
     Indication: RHEUMATOID ARTHRITIS
     Route: 042

REACTIONS (2)
  - LOCALISED INFECTION [None]
  - THERMAL BURN [None]
